FAERS Safety Report 8966265 (Version 1)
Quarter: 2012Q4

REPORT INFORMATION
  Report Type: 
  Country: SE (occurrence: SE)
  Receive Date: 20121217
  Receipt Date: 20121217
  Transmission Date: 20130627
  Serious: Yes (Hospitalization)
  Sender: FDA-Public Use
  Company Number: SE-PFIZER INC-2012287557

PATIENT
  Age: 72 Year
  Sex: Female
  Weight: 79 kg

DRUGS (24)
  1. GENOTROPIN [Suspect]
     Dosage: 0.4 mg, 1x/day, 7 injections/week
     Route: 058
     Dates: start: 19980209
  2. LEVOTHYROXINE [Concomitant]
     Indication: TSH DECREASED
     Dosage: UNK
     Dates: start: 19851001
  3. LEVOTHYROXINE [Concomitant]
     Indication: PRIMARY HYPOTHYROIDISM
  4. CORTISONE ACETATE [Concomitant]
     Indication: ACTH DECREASED
     Dosage: UNK
     Dates: start: 19851001
  5. TRISEQUENS [Concomitant]
     Indication: LUTEINISING HORMONE DEFICIENCY
     Dosage: UNK
     Dates: start: 19870101
  6. TRISEQUENS [Concomitant]
     Indication: FOLLICLE-STIMULATING HORMONE DEFICIENCY
  7. TRISEQUENS [Concomitant]
     Indication: OVARIAN DISORDER
  8. TRISEQUENS [Concomitant]
     Indication: HYPOGONADISM
  9. DECA-DURABOL [Concomitant]
     Indication: ACTH DECREASED
     Dosage: UNK
     Dates: start: 19930801
  10. ALLOPURINOL [Concomitant]
     Indication: URETHRAL DISORDER
     Dosage: UNK
     Dates: start: 19950101
  11. ALLOPURINOL [Concomitant]
     Indication: URINARY TRACT DISORDER
  12. DEKADIN [Concomitant]
     Indication: ACTH DECREASED
     Dosage: UNK
     Dates: start: 19960101
  13. TROMBYL [Concomitant]
     Indication: PROPHYLAXIS
     Dosage: UNK
     Dates: start: 19970830
  14. KLIOGEST [Concomitant]
     Indication: LUTEINISING HORMONE DEFICIENCY
     Dosage: UNK
     Dates: start: 19971001
  15. KLIOGEST [Concomitant]
     Indication: FOLLICLE-STIMULATING HORMONE DEFICIENCY
  16. KLIOGEST [Concomitant]
     Indication: OVARIAN DISORDER
  17. KLIOGEST [Concomitant]
     Indication: HYPOGONADISM
  18. SALURES-K [Concomitant]
     Indication: ESSENTIAL HYPERTENSION
     Dosage: UNK
     Dates: start: 19980710
  19. PROGYNON [Concomitant]
     Indication: LUTEINISING HORMONE DEFICIENCY
     Dosage: UNK
     Dates: start: 20000215
  20. PROGYNON [Concomitant]
     Indication: FOLLICLE-STIMULATING HORMONE DEFICIENCY
  21. PROGYNON [Concomitant]
     Indication: OVARIAN DISORDER
  22. SELOKEN ZOC [Concomitant]
     Indication: CARDIAC DYSRHYTHMIAS
     Dosage: UNK
     Dates: start: 20000414
  23. TENORMIN [Concomitant]
     Indication: ESSENTIAL HYPERTENSION
     Dosage: UNK
     Dates: start: 20020212
  24. KALIUM RETARD [Concomitant]
     Indication: HYPOPOTASSAEMIA
     Dosage: UNK
     Dates: start: 20030316

REACTIONS (1)
  - Foot deformity [Unknown]
